FAERS Safety Report 8762540 (Version 1)
Quarter: 2012Q4

REPORT INFORMATION
  Report Type: 
  Country: US (occurrence: US)
  Receive Date: 20120829
  Receipt Date: 20120829
  Transmission Date: 20130627
  Serious: No
  Sender: FDA-Public Use
  Company Number: US-PFIZER INC-2012208816

PATIENT
  Age: 79 Year
  Sex: Female
  Weight: 70.3 kg

DRUGS (3)
  1. LYRICA [Suspect]
     Indication: PAIN
     Dosage: 50 mg two times a day
     Dates: start: 201208, end: 20120820
  2. CAPSAICIN [Suspect]
     Indication: PAIN
     Dosage: 0.25 % two times a day
     Dates: start: 20120821, end: 20120823
  3. SIMVASTATIN [Concomitant]
     Indication: BLOOD CHOLESTEROL ABNORMAL
     Dosage: 10 mg every evening daily

REACTIONS (7)
  - Drug ineffective [Unknown]
  - Dizziness [Recovered/Resolved]
  - Somnolence [Recovered/Resolved]
  - Morbid thoughts [Recovered/Resolved]
  - Nausea [Not Recovered/Not Resolved]
  - Malaise [Not Recovered/Not Resolved]
  - Influenza [Not Recovered/Not Resolved]
